FAERS Safety Report 9966357 (Version 1)
Quarter: 2014Q1

REPORT INFORMATION
  Report Type: Report from Study
  Country: US (occurrence: US)
  Receive Date: 20140305
  Receipt Date: 20140305
  Transmission Date: 20141002
  Serious: No
  Sender: FDA-Public Use
  Company Number: US-ABBVIE-13P-163-1120723-00

PATIENT
  Age: 55 Year
  Sex: Male

DRUGS (13)
  1. HUMIRA [Suspect]
     Indication: COLITIS ULCERATIVE
     Dates: start: 20130516
  2. ASACOL HD [Concomitant]
     Indication: COLITIS
  3. INDERAL [Concomitant]
     Indication: PALPITATIONS
  4. ZYRTEC [Concomitant]
     Indication: HYPERSENSITIVITY
     Dosage: 10 MG DAILY
  5. SYMBICORT [Concomitant]
     Indication: COUGH
  6. FOLIC ACID [Concomitant]
     Indication: VITAMIN SUPPLEMENTATION
     Dosage: 1 MG DAILY
  7. FEOSOL [Concomitant]
     Indication: HAEMOGLOBIN DECREASED
     Dosage: 235 MG DAILY FERROUS SULFATE
  8. ALLIGN PROBIOTIC [Concomitant]
     Indication: PROBIOTIC THERAPY
     Dosage: 4 MG DAILY
  9. CENTUM SILVER [Concomitant]
     Indication: VITAMIN SUPPLEMENTATION
     Dosage: DAILY
  10. VITAMIN C [Concomitant]
     Indication: VITAMIN SUPPLEMENTATION
  11. ZANAFLEX [Concomitant]
     Indication: MUSCLE SPASMS
     Dosage: 4 MG DAILY
  12. VITAMIN B6 [Concomitant]
     Indication: VITAMIN SUPPLEMENTATION
     Dosage: 50 MG DAILY
  13. VITAMIN B12 [Concomitant]
     Indication: VITAMIN SUPPLEMENTATION
     Dosage: 1500 MCG DAILY

REACTIONS (4)
  - Injection site pruritus [Not Recovered/Not Resolved]
  - Injection site erythema [Not Recovered/Not Resolved]
  - Injection site warmth [Not Recovered/Not Resolved]
  - Injection site induration [Not Recovered/Not Resolved]
